FAERS Safety Report 25238955 (Version 1)
Quarter: 2025Q2

REPORT INFORMATION
  Report Type: Spontaneous
  Country: US (occurrence: US)
  Receive Date: 20250425
  Receipt Date: 20250425
  Transmission Date: 20250717
  Serious: Yes (Other)
  Sender: ACCORD
  Company Number: US-MLMSERVICE-20250407-PI470685-00165-1

PATIENT
  Age: 53 Year
  Sex: Male

DRUGS (2)
  1. GEMCITABINE [Suspect]
     Active Substance: GEMCITABINE
     Indication: Pancreatic carcinoma stage III
  2. PACLITAXEL [Suspect]
     Active Substance: PACLITAXEL
     Indication: Pancreatic carcinoma stage III

REACTIONS (3)
  - Pulmonary embolism [Unknown]
  - Pain [Unknown]
  - Off label use [Unknown]
